FAERS Safety Report 10688346 (Version 2)
Quarter: 2015Q1

REPORT INFORMATION
  Report Type: Spontaneous
  Country: US (occurrence: None)
  Receive Date: 20141231
  Receipt Date: 20150226
  Transmission Date: 20150720
  Serious: Yes (Other)
  Sender: FDA-Public Use
  Company Number: CC-000094

PATIENT
  Age: 11 Year
  Sex: Female
  Weight: 68.49 kg

DRUGS (1)
  1. NORTRIPTYLINE [Suspect]
     Active Substance: NORTRIPTYLINE
     Indication: DEPRESSION
     Dosage: 40 MG (20) ML DAILY/ORAL
     Route: 048
     Dates: start: 201406

REACTIONS (5)
  - Dizziness [None]
  - Blood pressure fluctuation [None]
  - Asthenia [None]
  - Hypotension [None]
  - Hypertension [None]

NARRATIVE: CASE EVENT DATE: 20141212
